FAERS Safety Report 6664499-2 (Version None)
Quarter: 2010Q2

REPORT INFORMATION
  Report Type: 
  Country: None (occurrence: None)
  Receive Date: 20100401
  Receipt Date: 20100326
  Transmission Date: 20101027
  Serious: Yes (Hospitalization)
  Sender: FDA-Public Use
  Company Number: US-GILEAD-2010-0028173

PATIENT
  Sex: Female

DRUGS (11)
  1. LETAIRIS [Suspect]
     Indication: PULMONARY ARTERIAL HYPERTENSION
     Route: 048
     Dates: start: 20100212, end: 20100313
  2. LETAIRIS [Suspect]
     Route: 048
     Dates: start: 20081209
  3. FUROSEMIDE [Concomitant]
  4. ZESTRIL [Concomitant]
  5. TOPROL-XL [Concomitant]
  6. NITROGLYCERIN [Concomitant]
  7. ISOSORBIDE DINITRATE [Concomitant]
  8. NEXIUM [Concomitant]
  9. COLACE [Concomitant]
  10. TRENTAL [Concomitant]
  11. HYDROCODONE [Concomitant]

REACTIONS (3)
  - CHRONIC OBSTRUCTIVE PULMONARY DISEASE [None]
  - EMPHYSEMA [None]
  - PLEURAL EFFUSION [None]
